FAERS Safety Report 11525447 (Version 3)
Quarter: 2015Q4

REPORT INFORMATION
  Report Type: Report from Study
  Country: CO (occurrence: CO)
  Receive Date: 20150918
  Receipt Date: 20151022
  Transmission Date: 20160304
  Serious: Yes (Other)
  Sender: FDA-Public Use
  Company Number: CO-GLAXOSMITHKLINE-CO2015129601

PATIENT
  Age: 47 Year
  Sex: Female
  Weight: 70 kg

DRUGS (4)
  1. CAPECITABINE. [Concomitant]
     Active Substance: CAPECITABINE
     Dosage: 6 TABLETS PER DAY DURING 14 DAYS
  2. PANITUMUMAB [Suspect]
     Active Substance: PANITUMUMAB
     Indication: COLORECTAL CANCER METASTATIC
     Dosage: 320 ?G, EEVRY 15 DAYS
     Route: 042
     Dates: start: 20150515
  3. CODEINE WITH ACETAMINOPHEN [Concomitant]
     Dosage: UNK
  4. ONDANSETRON [Suspect]
     Active Substance: ONDANSETRON
     Indication: PAIN
     Dosage: UNK
     Route: 065

REACTIONS (16)
  - Vomiting [Recovering/Resolving]
  - Skin burning sensation [Unknown]
  - Abdominal distension [Not Recovered/Not Resolved]
  - Pain [Unknown]
  - Dehydration [Unknown]
  - Papule [Unknown]
  - Skin reaction [Unknown]
  - Erythema [Unknown]
  - Skin lesion [Recovering/Resolving]
  - Discomfort [Not Recovered/Not Resolved]
  - Pain of skin [Unknown]
  - Hypersensitivity [Recovering/Resolving]
  - Thermal burn [Unknown]
  - Skin exfoliation [Not Recovered/Not Resolved]
  - Rash [Recovering/Resolving]
  - Pruritus [Unknown]

NARRATIVE: CASE EVENT DATE: 2015
